FAERS Safety Report 10570951 (Version 2)
Quarter: 2014Q4

REPORT INFORMATION
  Report Type: Spontaneous
  Country: HR (occurrence: HR)
  Receive Date: 20141107
  Receipt Date: 20141107
  Transmission Date: 20150529
  Serious: Yes (Other)
  Sender: FDA-Public Use
  Company Number: HR-ABBVIE-14P-216-1295281-00

PATIENT
  Age: 10 Year
  Sex: Female
  Weight: 38 kg

DRUGS (4)
  1. SEVOFLURANE. [Suspect]
     Active Substance: SEVOFLURANE
     Indication: LIMB OPERATION
  2. PROPOFOL. [Suspect]
     Active Substance: PROPOFOL
     Indication: PRODUCT USED FOR UNKNOWN INDICATION
     Dosage: 1-2 MG/KG
     Route: 042
  3. SEVOFLURANE. [Suspect]
     Active Substance: SEVOFLURANE
     Indication: RADIUS FRACTURE
     Route: 055
     Dates: start: 20140930, end: 20141001
  4. FENTANIL [Suspect]
     Active Substance: FENTANYL
     Indication: PRODUCT USED FOR UNKNOWN INDICATION
     Dosage: 2-6 MG/KG
     Route: 042
     Dates: start: 20140930, end: 20141010

REACTIONS (6)
  - Dyskinesia [Recovered/Resolved]
  - Chills [Recovered/Resolved]
  - Hiccups [Recovered/Resolved]
  - Hyperventilation [Recovered/Resolved]
  - Diaphragmatic spasm [Recovered/Resolved]
  - Myoclonus [Recovered/Resolved]

NARRATIVE: CASE EVENT DATE: 20140930
